FAERS Safety Report 5482712-4 (Version None)
Quarter: 2007Q4

REPORT INFORMATION
  Report Type: 
  Country: None (occurrence: None)
  Receive Date: 20071011
  Receipt Date: 20070929
  Transmission Date: 20080405
  Serious: Yes (Other)
  Sender: FDA-Public Use
  Company Number: US-PFIZER INC-2007082558

PATIENT
  Sex: Female
  Weight: 90.909 kg

DRUGS (7)
  1. CHANTIX [Suspect]
     Indication: SMOKING CESSATION THERAPY
  2. BUPRENORPHINE HYDROCHLORIDE/NALOXONE HYDROCHLORIDE [Concomitant]
  3. BUSPIRONE HCL [Concomitant]
  4. COLESTID [Concomitant]
     Indication: BLOOD CHOLESTEROL INCREASED
     Dosage: TEXT:2 MG DAILY
  5. PROTONIX [Concomitant]
     Indication: GASTROOESOPHAGEAL REFLUX DISEASE
     Dosage: TEXT:40MG DAILY
  6. PROZAC [Concomitant]
  7. ANTABUSE [Concomitant]
     Dosage: TEXT:500MG DAILY

REACTIONS (3)
  - DEMENTIA [None]
  - GAIT DISTURBANCE [None]
  - MUSCULAR WEAKNESS [None]
